FAERS Safety Report 4372418-7 (Version None)
Quarter: 2004Q2

REPORT INFORMATION
  Report Type: 
  Country: None (occurrence: None)
  Receive Date: 20040602
  Receipt Date: 20040524
  Transmission Date: 20050107
  Serious: No
  Sender: FDA-Public Use
  Company Number: 04P-087-0261840-00

PATIENT
  Age: 4 Year
  Sex: Male

DRUGS (1)
  1. OMNICEF [Suspect]
     Indication: PHARYNGITIS
     Dosage: 50 MG, 3 IN 1 D, ORAL
     Route: 048
     Dates: start: 20040507, end: 20040508

REACTIONS (1)
  - HAEMORRHAGE SUBCUTANEOUS [None]
